FAERS Safety Report 4318296-3 (Version None)
Quarter: 2004Q1

REPORT INFORMATION
  Report Type: 
  Country: None (occurrence: None)
  Receive Date: 20040315
  Receipt Date: 20031124
  Transmission Date: 20041129
  Serious: No
  Sender: FDA-Public Use
  Company Number: 2003187828US

PATIENT
  Age: 77 Year
  Sex: Female
  Weight: 47.6 kg

DRUGS (6)
  1. BEXTRA [Suspect]
     Indication: OSTEOARTHRITIS
     Dosage: 20 MG, QD
     Dates: start: 20031101, end: 20030101
  2. PNEUMONIA AND FLUE SHOT [Concomitant]
  3. PROVIGIL [Concomitant]
  4. KLONOPIN [Concomitant]
  5. PREMARIN [Concomitant]
  6. ULTRAM [Concomitant]

REACTIONS (4)
  - DIARRHOEA [None]
  - NAUSEA [None]
  - SKIN DISORDER [None]
  - SWELLING FACE [None]
